FAERS Safety Report 22105847 (Version 4)
Quarter: 2024Q2

REPORT INFORMATION
  Report Type: Spontaneous
  Country: JP (occurrence: JP)
  Receive Date: 20230317
  Receipt Date: 20240607
  Transmission Date: 20240716
  Serious: Yes (Other)
  Sender: FDA-Public Use
  Company Number: JP-TAKEDA-2023TJP003532

PATIENT
  Age: 79 Year
  Sex: Male
  Weight: 51.8 kg

DRUGS (4)
  1. VONVENDI [Suspect]
     Active Substance: VON WILLEBRAND FACTOR (RECOMBINANT)
     Indication: Von Willebrand^s disease
     Dosage: 3900 INTERNATIONAL UNIT
     Route: 042
     Dates: start: 20230309
  2. VONVENDI [Suspect]
     Active Substance: VON WILLEBRAND FACTOR (RECOMBINANT)
     Dosage: 2600 INTERNATIONAL UNIT, BID
     Route: 042
     Dates: start: 20230309
  3. VONVENDI [Suspect]
     Active Substance: VON WILLEBRAND FACTOR (RECOMBINANT)
     Dosage: 2600 INTERNATIONAL UNIT, TID
     Route: 042
  4. VONVENDI [Suspect]
     Active Substance: VON WILLEBRAND FACTOR (RECOMBINANT)
     Dosage: 3900 INTERNATIONAL UNIT, TID
     Route: 042
     Dates: end: 20230406

REACTIONS (2)
  - Von Willebrand^s factor inhibition [Recovered/Resolved]
  - Drug ineffective [Unknown]

NARRATIVE: CASE EVENT DATE: 20230316
